FAERS Safety Report 21008101 (Version 1)
Quarter: 2022Q2

REPORT INFORMATION
  Report Type: Spontaneous
  Country: US (occurrence: None)
  Receive Date: 20220627
  Receipt Date: 20220627
  Transmission Date: 20220721
  Serious: Yes (Death)
  Sender: FDA-Public Use
  Company Number: US-ROCHE-3123135

PATIENT
  Sex: Female

DRUGS (1)
  1. XELODA [Suspect]
     Active Substance: CAPECITABINE
     Indication: Breast cancer female
     Dosage: TWICE DAILY FOR 14 DAYS (IN THE MORNING AND EVENING) THEN 7 DAYS OFF.
     Route: 048
     Dates: start: 20220314

REACTIONS (1)
  - Death [Fatal]
